FAERS Safety Report 19177101 (Version 1)
Quarter: 2021Q2

REPORT INFORMATION
  Report Type: Spontaneous
  Country: US (occurrence: US)
  Receive Date: 20210424
  Receipt Date: 20210424
  Transmission Date: 20210717
  Serious: Yes (Hospitalization, Other)
  Sender: FDA-Public Use
  Company Number: US-BAXTER-2021BAX008687

PATIENT
  Age: 24 Month
  Sex: Male

DRUGS (16)
  1. DEXRAZOXANE. [Suspect]
     Active Substance: DEXRAZOXANE
     Indication: NEUROBLASTOMA
     Dosage: UNK UNK, CYCLICAL (INDUCTION CYCLE 4)
     Route: 065
  2. CISPLATIN. [Suspect]
     Active Substance: CISPLATIN
     Indication: NEUROBLASTOMA
     Dosage: UNK UNK, CYCLICAL (INDUCTION CYCLE 5)
     Route: 065
  3. UNITUXIN [Suspect]
     Active Substance: DINUTUXIMAB
     Indication: NEUROBLASTOMA
     Dosage: INTRAVENOUS INFUSION; UNK, CYCLE OF VDC WITH DINUTUXIMAB
     Route: 041
  4. VINCRISTINE SULFATE. [Suspect]
     Active Substance: VINCRISTINE SULFATE
     Dosage: UNK UNK, CYCLE OF VDC
     Route: 065
  5. UNITUXIN [Suspect]
     Active Substance: DINUTUXIMAB
     Dosage: INTRAVENOUS INFUSION; UNK UNK, CYCLICAL (INDUCTION CYCLE 4)
     Route: 041
  6. VINCRISTINE SULFATE. [Suspect]
     Active Substance: VINCRISTINE SULFATE
     Indication: NEUROBLASTOMA
     Dosage: UNK UNK, CYCLICAL (INDUCTION CYCLE 4)
     Route: 065
  7. CYCLOPHOSPHAMIDE FOR INJECTION, USP [Suspect]
     Active Substance: CYCLOPHOSPHAMIDE
     Dosage: UNK UNK, CYCLE OF VDC
     Route: 065
  8. ETOPOSIDE. [Suspect]
     Active Substance: ETOPOSIDE
     Indication: NEUROBLASTOMA
     Dosage: UNK UNK, CYCLICAL (INDUCTION CYCLE 5)
     Route: 065
  9. MESNEX [Suspect]
     Active Substance: MESNA
     Indication: NEUROBLASTOMA
     Dosage: UNK UNK, CYCLICAL (INDUCTION CYCLE 4)
     Route: 065
  10. SARGRAMOSTIM [Suspect]
     Active Substance: SARGRAMOSTIM
     Dosage: UNK UNK, CYCLICAL (INDUCTION CYCLE 5)
     Route: 065
  11. DOXIL [Suspect]
     Active Substance: DOXORUBICIN HYDROCHLORIDE
     Indication: NEUROBLASTOMA
     Dosage: UNK UNK, CYCLICAL (INDUCTION CYCLE 4)
     Route: 065
  12. DOXIL [Suspect]
     Active Substance: DOXORUBICIN HYDROCHLORIDE
     Dosage: UNK UNK, CYCLE OF VDC
     Route: 065
  13. CYCLOPHOSPHAMIDE FOR INJECTION, USP [Suspect]
     Active Substance: CYCLOPHOSPHAMIDE
     Indication: NEUROBLASTOMA
     Dosage: UNK UNK, CYCLICAL (INDUCTION CYCLE 4)
     Route: 065
  14. UNITUXIN [Suspect]
     Active Substance: DINUTUXIMAB
     Dosage: INTRAVENOUS INFUSION; UNK UNK, CYCLICAL (INDUCTION CYCLE 5)
     Route: 041
  15. UNITUXIN [Suspect]
     Active Substance: DINUTUXIMAB
     Dosage: DOSE RE?INTRODUCED; INTRAVENOUS INFUSION; UNK UNK, CYCLICAL (INFUSION RATE: 2.5 ML/HR)
     Route: 041
  16. SARGRAMOSTIM [Suspect]
     Active Substance: SARGRAMOSTIM
     Indication: NEUROBLASTOMA
     Dosage: UNK UNK, CYCLICAL (INDUCTION CYCLE 4)
     Route: 065

REACTIONS (4)
  - Therapy partial responder [Unknown]
  - Pyrexia [Unknown]
  - Hypotension [Unknown]
  - Drug hypersensitivity [Unknown]
